FAERS Safety Report 18208035 (Version 2)
Quarter: 2020Q3

REPORT INFORMATION
  Report Type: Spontaneous
  Country: FR (occurrence: FR)
  Receive Date: 20200828
  Receipt Date: 20200831
  Transmission Date: 20201103
  Serious: Yes (Death, Hospitalization)
  Sender: FDA-Public Use
  Company Number: FR-PFIZER INC-2020333021

PATIENT
  Age: 90 Year
  Sex: Female
  Weight: 46 kg

DRUGS (1)
  1. VYNDAQEL [Suspect]
     Active Substance: TAFAMIDIS MEGLUMINE
     Dosage: 20 MG, DAILY
     Dates: end: 20200803

REACTIONS (2)
  - Cardiac failure [Fatal]
  - Arrhythmia supraventricular [Fatal]

NARRATIVE: CASE EVENT DATE: 202007
